FAERS Safety Report 7381831-5 (Version None)
Quarter: 2011Q1

REPORT INFORMATION
  Report Type: 
  Country: None (occurrence: None)
  Receive Date: 20110329
  Receipt Date: 20090205
  Transmission Date: 20110831
  Serious: Yes (Hospitalization, Other)
  Sender: FDA-Public Use
  Company Number: US-BAYER-200912250NA

PATIENT
  Sex: Male
  Weight: 86.168 kg

DRUGS (20)
  1. DOBUTREX [Concomitant]
     Dosage: UNK
     Route: 042
     Dates: start: 20060323, end: 20060323
  2. PROTAMINE SULFATE [Concomitant]
     Dosage: UNK
     Route: 042
     Dates: start: 20060323, end: 20060323
  3. VITAMIN B-12 [Concomitant]
     Route: 048
  4. ZOCOR [Concomitant]
     Dosage: UNK
     Route: 048
  5. DEXMEDETOMIDINE HYDROCHLORIDE [Concomitant]
     Dosage: UNK
     Route: 042
     Dates: start: 20060323, end: 20060323
  6. TRASYLOL [Suspect]
     Indication: CARDIAC OPERATION
     Dosage: 50 ML/HR DRIP
     Dates: start: 20060327, end: 20060327
  7. ASPIRIN [Concomitant]
     Dosage: 162 MG, BID
  8. HEPARIN SODIUM [Concomitant]
     Dosage: UNK
     Dates: start: 20060323, end: 20060323
  9. ALBUMEN [Concomitant]
     Dosage: 500 ML, UNK
     Route: 042
     Dates: start: 20060323, end: 20060323
  10. MUPIROCIN [Concomitant]
     Dosage: UNK
     Dates: start: 20060323, end: 20060323
  11. FISH OIL [Concomitant]
     Route: 048
  12. VITAMIN E [Concomitant]
     Route: 048
  13. ANCEF [Concomitant]
     Dosage: 1 G, UNK
     Route: 042
     Dates: start: 20060323, end: 20060323
  14. TRASYLOL [Suspect]
     Indication: MITRAL VALVE REPAIR
     Dosage: 199 ML
     Dates: start: 20060327, end: 20060327
  15. TRASYLOL [Suspect]
     Dosage: 200 ML VIA CARDIOPULMONARY BYPASS
     Dates: start: 20060327, end: 20060327
  16. VERSED [Concomitant]
     Dosage: 5 MG, UNK
     Route: 042
     Dates: start: 20060323, end: 20060323
  17. LOPRESSOR [Concomitant]
     Dosage: 25 MG, QD
     Route: 048
  18. BLOOD CELLS, PACKED HUMAN [Concomitant]
     Dosage: 2 U, UNK
     Route: 042
     Dates: start: 20060327, end: 20060327
  19. TRASYLOL [Suspect]
     Indication: CORONARY ARTERY BYPASS
     Dosage: 1 ML TEST DOSE
     Route: 042
     Dates: start: 20060327, end: 20060327
  20. MORPHINE [Concomitant]
     Dosage: 4 MG, UNK
     Route: 042
     Dates: start: 20060323, end: 20060323

REACTIONS (5)
  - RENAL FAILURE ACUTE [None]
  - UNEVALUABLE EVENT [None]
  - PAIN [None]
  - RENAL FAILURE [None]
  - INJURY [None]
